FAERS Safety Report 18833860 (Version 1)
Quarter: 2021Q1

REPORT INFORMATION
  Report Type: Spontaneous
  Country: US (occurrence: US)
  Receive Date: 20210203
  Receipt Date: 20210203
  Transmission Date: 20210419
  Serious: No
  Sender: FDA-Public Use
  Company Number: US-ALLERGAN-2035557US

PATIENT
  Age: 5 Decade
  Sex: Female

DRUGS (1)
  1. BOTOX [Suspect]
     Active Substance: ONABOTULINUMTOXINA
     Indication: MIGRAINE
     Dosage: 155 UNITS, SINGLE
     Dates: start: 20200910, end: 20200910

REACTIONS (3)
  - Injection site mass [Not Recovered/Not Resolved]
  - Injection site swelling [Not Recovered/Not Resolved]
  - Facial discomfort [Not Recovered/Not Resolved]

NARRATIVE: CASE EVENT DATE: 20200910
